FAERS Safety Report 7158093-7 (Version None)
Quarter: 2010Q4

REPORT INFORMATION
  Report Type: 
  Country: None (occurrence: None)
  Receive Date: 20101214
  Receipt Date: 20100422
  Transmission Date: 20110411
  Serious: No
  Sender: FDA-Public Use
  Company Number: US-ASTRAZENECA-2010SE18218

PATIENT
  Age: 78 Year
  Sex: Female

DRUGS (3)
  1. CRESTOR [Suspect]
     Route: 048
  2. ACTONEL [Concomitant]
  3. HEART MEDICATION [Concomitant]

REACTIONS (1)
  - ABASIA [None]
